FAERS Safety Report 6292837-1 (Version None)
Quarter: 2009Q3

REPORT INFORMATION
  Report Type: 
  Country: None (occurrence: None)
  Receive Date: 20090731
  Receipt Date: 20090721
  Transmission Date: 20100115
  Serious: Yes (Other)
  Sender: FDA-Public Use
  Company Number: PHHY2009MX30279

PATIENT
  Sex: Female

DRUGS (2)
  1. DIOVAN [Suspect]
     Indication: HYPERTENSION
     Dosage: 160 MG, QD
     Route: 048
     Dates: start: 20090101, end: 20090701
  2. DIOVAN [Suspect]
     Dosage: 0.5 TABLET DAILY
     Route: 048
     Dates: start: 20090701

REACTIONS (1)
  - EYE HAEMORRHAGE [None]
